FAERS Safety Report 22219410 (Version 2)
Quarter: 2023Q2

REPORT INFORMATION
  Report Type: Spontaneous
  Country: US (occurrence: US)
  Receive Date: 20230417
  Receipt Date: 20230609
  Transmission Date: 20230722
  Serious: No
  Sender: FDA-Public Use
  Company Number: US-PFIZER INC-PV202300067675

PATIENT
  Age: 58 Year
  Sex: Female

DRUGS (1)
  1. RUXIENCE [Suspect]
     Active Substance: RITUXIMAB-PVVR
     Indication: Neuromyelitis optica spectrum disorder
     Dosage: UNK

REACTIONS (4)
  - Sleep disorder [Unknown]
  - Feeling abnormal [Unknown]
  - Off label use [Unknown]
  - Drug effective for unapproved indication [Unknown]
